FAERS Safety Report 9185271 (Version 1)
Quarter: 2012Q4

REPORT INFORMATION
  Report Type: 
  Country: BR (occurrence: BR)
  Receive Date: 20121101
  Receipt Date: 20121101
  Transmission Date: 20130627
  Serious: Yes (Other)
  Sender: FDA-Public Use
  Company Number: BR-PFIZER INC-2012268783

PATIENT
  Age: 58 Year
  Sex: Female
  Weight: 58.9 kg

DRUGS (5)
  1. CHAMPIX [Suspect]
     Indication: TOBACCO USER
     Dosage: two tablets daily
     Route: 048
     Dates: start: 20121012
  2. SERTRALINE [Concomitant]
     Indication: DEPRESSION
     Dosage: Unspecified dosage, 1x/day
  3. ENALAPRIL [Concomitant]
     Indication: HYPERTENSION
     Dosage: Unspecified dosage, 1x/day
     Dates: start: 201210
  4. GLIFAGE [Concomitant]
     Indication: DIABETES
     Dosage: Unspecified dosage, once at night
     Dates: start: 201204
  5. RIVOTRIL [Concomitant]
     Indication: SLEEP DISORDER
     Dosage: 10 drops at night

REACTIONS (1)
  - Haematochezia [Not Recovered/Not Resolved]
